FAERS Safety Report 5746794-4 (Version None)
Quarter: 2008Q2

REPORT INFORMATION
  Report Type: 
  Country: None (occurrence: None)
  Receive Date: 20080522
  Receipt Date: 20080513
  Transmission Date: 20081010
  Serious: Yes (Death, Other)
  Sender: FDA-Public Use
  Company Number: AU-PFIZER INC-2008035704

PATIENT
  Sex: Male
  Weight: 98 kg

DRUGS (6)
  1. CHANTIX [Suspect]
     Dates: start: 20071101, end: 20071207
  2. VERAPAMIL HYDROCHLORIDE [Concomitant]
  3. ZOCOR [Concomitant]
  4. ZOLOFT [Concomitant]
  5. MICARDIS [Concomitant]
  6. LISODUR [Concomitant]

REACTIONS (6)
  - CHEST PAIN [None]
  - DYSPHONIA [None]
  - HEADACHE [None]
  - INSOMNIA [None]
  - LUNG NEOPLASM MALIGNANT [None]
  - NAUSEA [None]
